FAERS Safety Report 19438107 (Version 1)
Quarter: 2021Q2

REPORT INFORMATION
  Report Type: Spontaneous
  Country: DE (occurrence: DE)
  Receive Date: 20210618
  Receipt Date: 20210618
  Transmission Date: 20210717
  Serious: Yes (Other)
  Sender: FDA-Public Use
  Company Number: DE-TAKEDA-2021TUS034754

PATIENT
  Age: 56 Year
  Sex: Female

DRUGS (1)
  1. 476 (MESALAZINE/MESALAMINE) [Suspect]
     Active Substance: MESALAMINE
     Indication: COLITIS ULCERATIVE
     Dosage: 1500 MILLIGRAM
     Route: 065

REACTIONS (3)
  - Diverticulitis [Unknown]
  - Fatigue [Recovering/Resolving]
  - Abdominal pain [Recovering/Resolving]
